FAERS Safety Report 10409760 (Version 2)
Quarter: 2014Q3

REPORT INFORMATION
  Report Type: Report from Study
  Country: US (occurrence: US)
  Receive Date: 20140826
  Receipt Date: 20140826
  Transmission Date: 20150326
  Serious: Yes (Death, Other)
  Sender: FDA-Public Use
  Company Number: US-ASTELLAS-2014US010840

PATIENT
  Sex: Male

DRUGS (3)
  1. ERLOTINIB [Suspect]
     Active Substance: ERLOTINIB
     Indication: HEPATIC CANCER
     Dosage: 100 MG, THRICE WEEKLY EVERY MWF
     Route: 048
     Dates: start: 20081210, end: 20090224
  2. ERLOTINIB [Suspect]
     Active Substance: ERLOTINIB
     Route: 048
     Dates: start: 20081210, end: 20090224
  3. AVASTIN [Suspect]
     Active Substance: BEVACIZUMAB
     Indication: HEPATIC CANCER
     Dosage: UNK, UNKNOWN FREQ.
     Route: 065

REACTIONS (7)
  - Malnutrition [Unknown]
  - Off label use [Unknown]
  - Diarrhoea [Unknown]
  - Hepatocellular carcinoma [Fatal]
  - Depression [Unknown]
  - Chronic hepatitis [Unknown]
  - Liver disorder [Unknown]
